FAERS Safety Report 7480607-8 (Version None)
Quarter: 2011Q2

REPORT INFORMATION
  Report Type: 
  Country: None (occurrence: None)
  Receive Date: 20110516
  Receipt Date: 20110511
  Transmission Date: 20111010
  Serious: Yes (Death)
  Sender: FDA-Public Use
  Company Number: US-ASTELLAS-2011US002170

PATIENT
  Sex: Male
  Weight: 94 kg

DRUGS (1)
  1. PROGRAF [Suspect]
     Indication: RENAL TRANSPLANT
     Dosage: 9 MG, BID
     Route: 065
     Dates: start: 20100809

REACTIONS (1)
  - DEATH [None]
